FAERS Safety Report 5418972-5 (Version None)
Quarter: 2007Q3

REPORT INFORMATION
  Report Type: 
  Country: None (occurrence: None)
  Receive Date: 20070817
  Receipt Date: 20070807
  Transmission Date: 20080115
  Serious: Yes (Other)
  Sender: FDA-Public Use
  Company Number: US-PFIZER INC-2007066326

PATIENT
  Sex: Female
  Weight: 59.09 kg

DRUGS (5)
  1. CHANTIX [Suspect]
     Indication: SMOKING CESSATION THERAPY
  2. LAMICTAL [Concomitant]
  3. CONCERTA [Concomitant]
  4. LEXAPRO [Concomitant]
  5. FOSAMAX [Concomitant]

REACTIONS (5)
  - ABNORMAL DREAMS [None]
  - FINE MOTOR DELAY [None]
  - HYPOKINESIA [None]
  - INSOMNIA [None]
  - SPEECH DISORDER [None]
